FAERS Safety Report 23882735 (Version 2)
Quarter: 2024Q2

REPORT INFORMATION
  Report Type: Report from Study
  Country: US (occurrence: US)
  Receive Date: 20240522
  Receipt Date: 20240614
  Transmission Date: 20240716
  Serious: Yes (Death)
  Sender: FDA-Public Use
  Company Number: PVI-US-2024-001015

PATIENT

DRUGS (2)
  1. PEGCETACOPLAN [Suspect]
     Active Substance: PEGCETACOPLAN
     Indication: C3 glomerulopathy
     Dosage: 1080 MG IV ON DAY 1 + 2, THEN SC 3X/WEEK ON DAY 2
     Route: 042
     Dates: start: 20240328, end: 20240419
  2. PEGCETACOPLAN [Suspect]
     Active Substance: PEGCETACOPLAN
     Dosage: 1080 MG IV ON DAY 1 + 2, THEN SC 3X/WEEK ON DAY 2
     Route: 058
     Dates: start: 20240328, end: 20240419

REACTIONS (3)
  - Acute cardiac event [Fatal]
  - Cardiomegaly [Unknown]
  - Coronary artery disease [Unknown]
